FAERS Safety Report 5829989-0 (Version None)
Quarter: 2008Q3

REPORT INFORMATION
  Report Type: 
  Country: None (occurrence: None)
  Receive Date: 20080801
  Receipt Date: 20080723
  Transmission Date: 20090109
  Serious: Yes (Other)
  Sender: FDA-Public Use
  Company Number: US-ROCHE-577094

PATIENT
  Age: 72 Year
  Sex: Female

DRUGS (11)
  1. XENICAL [Suspect]
     Indication: DRUG USE FOR UNKNOWN INDICATION
     Route: 065
  2. ALLI [Suspect]
     Route: 065
     Dates: start: 20080205, end: 20080208
  3. VERAPAMIL [Concomitant]
  4. CARBAMAZEPINE [Concomitant]
  5. AMLODIPINE [Concomitant]
  6. LIPITOR [Concomitant]
  7. DIOVAN [Concomitant]
  8. DIOVAN [Concomitant]
  9. SERTRALINE [Concomitant]
  10. NOVOLIN [Concomitant]
     Dosage: DRUG: NOVOLIN 70/30 (PEN)
  11. 1 CONCOMITANT DRUG [Concomitant]
     Dosage: DRUG: GLUCOSE TABLETS

REACTIONS (6)
  - ABDOMINAL PAIN UPPER [None]
  - ASTHENIA [None]
  - DEFAECATION URGENCY [None]
  - FREQUENT BOWEL MOVEMENTS [None]
  - HYPOGLYCAEMIC COMA [None]
  - NAUSEA [None]
